FAERS Safety Report 21458479 (Version 2)
Quarter: 2022Q4

REPORT INFORMATION
  Report Type: Spontaneous
  Country: GR (occurrence: GR)
  Receive Date: 20221014
  Receipt Date: 20221109
  Transmission Date: 20230113
  Serious: No
  Sender: FDA-Public Use
  Company Number: GR-PFIZER INC-PV202200067312

PATIENT
  Sex: Male

DRUGS (2)
  1. GENOTROPIN [Suspect]
     Active Substance: SOMATROPIN
     Indication: Growth hormone deficiency
     Dosage: 4.5 ML, WEEKLY
     Dates: start: 20200303
  2. GENOTROPIN [Suspect]
     Active Substance: SOMATROPIN
     Dosage: 5 ML, WEEKLY
     Dates: start: 202208

REACTIONS (3)
  - Liquid product physical issue [Unknown]
  - Product reconstitution quality issue [Unknown]
  - Poor quality product administered [Unknown]

NARRATIVE: CASE EVENT DATE: 20220823
